FAERS Safety Report 6223078-1 (Version None)
Quarter: 2009Q2

REPORT INFORMATION
  Report Type: 
  Country: None (occurrence: None)
  Receive Date: 20090611
  Receipt Date: 20090602
  Transmission Date: 20091009
  Serious: Yes (Life-Threatening, Hospitalization)
  Sender: FDA-Public Use
  Company Number: CH-B.I. PHARMACEUTICALS,INC./RIDGEFIELD-2009-DE-04073GD

PATIENT
  Age: 36 Year
  Sex: Male

DRUGS (8)
  1. NEVIRAPINE [Suspect]
     Indication: HIV INFECTION
  2. PREDNISONE [Suspect]
     Indication: IMMUNE RECONSTITUTION SYNDROME
     Dosage: 50MG
  3. LAMIVUDINE [Suspect]
     Indication: HIV INFECTION
  4. ZIDOVUDINE [Suspect]
     Indication: HIV INFECTION
  5. ISONIAZID [Concomitant]
     Indication: TUBERCULOSIS
  6. RIFAMPICIN [Concomitant]
     Indication: TUBERCULOSIS
  7. ETHAMBUTOL HCL [Concomitant]
     Indication: TUBERCULOSIS
  8. PYRAZINAMIDE [Concomitant]
     Indication: TUBERCULOSIS

REACTIONS (9)
  - CUTANEOUS TUBERCULOSIS [None]
  - DIARRHOEA [None]
  - DISSEMINATED TUBERCULOSIS [None]
  - DYSPNOEA [None]
  - IMMUNE RECONSTITUTION SYNDROME [None]
  - LYMPHADENOPATHY [None]
  - PNEUMOCYSTIS JIROVECI INFECTION [None]
  - RELAPSING FEVER [None]
  - SPLENIC RUPTURE [None]
